FAERS Safety Report 15459196 (Version 6)
Quarter: 2019Q2

REPORT INFORMATION
  Report Type: Report from Study
  Country: IT (occurrence: IT)
  Receive Date: 20181003
  Receipt Date: 20190611
  Transmission Date: 20190711
  Serious: Yes (Death, Hospitalization)
  Sender: FDA-Public Use
  Company Number: IT-PFIZER INC-2018345152

PATIENT
  Age: 69 Year
  Sex: Female
  Weight: 64 kg

DRUGS (6)
  1. MEGESTROL [Concomitant]
     Active Substance: MEGESTROL
     Dosage: UNK
  2. DILATREND [Concomitant]
     Active Substance: CARVEDILOL
     Dosage: UNK
  3. LOSAZID [Concomitant]
     Active Substance: HYDROCHLOROTHIAZIDE\LOSARTAN POTASSIUM
     Dosage: UNK
  4. PLASIL [METOCLOPRAMIDE] [Concomitant]
     Dosage: UNK
  5. SUNITINIB MALATE. [Suspect]
     Active Substance: SUNITINIB MALATE
     Indication: CLEAR CELL RENAL CELL CARCINOMA
     Dosage: 50 MG, CYCLIC (1X/DAY, 4 WEEKS ON/2 WEEKS OFF)
     Route: 048
     Dates: start: 20180713, end: 20180810
  6. DELTACORTENE [Concomitant]
     Active Substance: PREDNISONE
     Dosage: UNK

REACTIONS (3)
  - Cachexia [Fatal]
  - Peritonitis [Recovered/Resolved]
  - Diverticular perforation [Not Recovered/Not Resolved]

NARRATIVE: CASE EVENT DATE: 20180811
